FAERS Safety Report 18794639 (Version 3)
Quarter: 2021Q1

REPORT INFORMATION
  Report Type: Report from Study
  Country: CN (occurrence: CN)
  Receive Date: 20210127
  Receipt Date: 20210129
  Transmission Date: 20210419
  Serious: Yes (Death)
  Sender: FDA-Public Use
  Company Number: CN-PFIZER INC-2021062842

PATIENT

DRUGS (4)
  1. ETOPOSIDE. [Suspect]
     Active Substance: ETOPOSIDE
     Indication: LYMPHOMA
     Dosage: 100 MG/M2/DAY ON DAYS 2 TO 5 BEFORE REINFUSION
  2. CYTARABINE. [Suspect]
     Active Substance: CYTARABINE
     Indication: LYMPHOMA
     Dosage: 100 MG/M2/DAY ON DAYS 2 TO 5 BEFORE REINFUSION
  3. CYCLOPHOSPHAMIDE. [Suspect]
     Active Substance: CYCLOPHOSPHAMIDE
     Indication: LYMPHOMA
     Dosage: 1.5 G/M2/DAY ON DAYS 2 TO 5 BEFORE REINFUSION
  4. LOMUSTINE. [Suspect]
     Active Substance: LOMUSTINE
     Indication: LYMPHOMA
     Dosage: 200 MG/M2/DAY ON DAY 6 BEFORE REINFUSION

REACTIONS (1)
  - Death [Fatal]
